FAERS Safety Report 9035806 (Version 1)
Quarter: 2013Q1

REPORT INFORMATION
  Report Type: Report from Study
  Country: US (occurrence: US)
  Receive Date: 20130129
  Receipt Date: 20130129
  Transmission Date: 20140127
  Serious: No
  Sender: FDA-Public Use
  Company Number: US-ABBOTT-12P-163-0927043-00

PATIENT
  Age: 59 None
  Sex: Female
  Weight: 78.09 kg

DRUGS (8)
  1. HUMIRA 40 MG/0.8 ML PEN [Suspect]
     Indication: RHEUMATOID ARTHRITIS
     Dates: start: 20120404
  2. PREDNISONE [Concomitant]
     Indication: RHEUMATOID ARTHRITIS
  3. LEVOTHYROXINE [Concomitant]
     Indication: PROPHYLAXIS
     Dosage: LOW DOSE
  4. LEVOTHYROXINE [Concomitant]
     Indication: THYROIDECTOMY
  5. LEVOTHYROXINE [Concomitant]
     Indication: THYROID NEOPLASM
  6. CYCLOBENZAPRINE [Concomitant]
     Indication: FIBROMYALGIA
  7. CYCLOBENZAPRINE [Concomitant]
     Indication: MUSCLE SPASMS
  8. ALENDRONATE [Concomitant]
     Indication: BONE DISORDER

REACTIONS (5)
  - Pollakiuria [Recovering/Resolving]
  - Injection site pain [Not Recovered/Not Resolved]
  - Injection site pain [Recovered/Resolved]
  - Abdominal pain [Recovered/Resolved]
  - Cystitis [Not Recovered/Not Resolved]
